FAERS Safety Report 5914643-7 (Version None)
Quarter: 2008Q4

REPORT INFORMATION
  Report Type: 
  Country: None (occurrence: None)
  Receive Date: 20081010
  Receipt Date: 20081003
  Transmission Date: 20090506
  Serious: Yes (Other)
  Sender: FDA-Public Use
  Company Number: FR-WYE-G02288208

PATIENT
  Age: 60 Year
  Sex: Male

DRUGS (5)
  1. TORISEL [Suspect]
     Indication: RENAL CANCER METASTATIC
     Dosage: 25 MG EVERY 1 CYC
     Route: 042
     Dates: start: 20080906, end: 20080926
  2. SUFENTANIL CITRATE [Interacting]
     Indication: CANCER PAIN
     Dosage: 240 MG TOTAL DAILY
     Dates: start: 20080924, end: 20080927
  3. SUFENTANIL CITRATE [Interacting]
     Dosage: 240 MG TOTAL DAILY
     Dates: start: 20080101
  4. KETAMINE HCL [Interacting]
     Indication: CANCER PAIN
     Dosage: 50 MG TOTAL DAILY
     Dates: start: 20080924, end: 20080927
  5. KETAMINE HCL [Interacting]
     Dosage: 50 MG TOTAL DAILY
     Dates: start: 20080101

REACTIONS (3)
  - ALTERED STATE OF CONSCIOUSNESS [None]
  - DRUG INTERACTION [None]
  - GENERAL PHYSICAL HEALTH DETERIORATION [None]
